FAERS Safety Report 25116411 (Version 3)
Quarter: 2025Q2

REPORT INFORMATION
  Report Type: Report from Study
  Country: RU (occurrence: RU)
  Receive Date: 20250325
  Receipt Date: 20250411
  Transmission Date: 20250717
  Serious: Yes (Other)
  Sender: ALEXION PHARMACEUTICALS
  Company Number: RU-AstraZeneca-CH-00830249A

PATIENT

DRUGS (1)
  1. SELUMETINIB [Suspect]
     Active Substance: SELUMETINIB
     Route: 065

REACTIONS (3)
  - Hyperkeratosis [Recovered/Resolved]
  - Dry skin [Not Recovered/Not Resolved]
  - Paronychia [Not Recovered/Not Resolved]
